FAERS Safety Report 5050762-8 (Version None)
Quarter: 2006Q3

REPORT INFORMATION
  Report Type: 
  Country: None (occurrence: None)
  Receive Date: 20060713
  Receipt Date: 20060321
  Transmission Date: 20061208
  Serious: Yes (Hospitalization)
  Sender: FDA-Public Use
  Company Number: US-BOEHRINGER INGELHEIM PHARMACEUTICALS, INC.-2006-BP-03217BP

PATIENT
  Sex: Male
  Weight: 140.61 kg

DRUGS (3)
  1. MICARDIS HCT [Suspect]
     Indication: HYPERTENSION
     Route: 048
     Dates: start: 20060228, end: 20060320
  2. PREDNISONE TAB [Suspect]
     Indication: BRONCHITIS
     Route: 048
     Dates: start: 20060303, end: 20060307
  3. ADVAIR DISKUS 100/50 [Concomitant]
     Indication: BRONCHITIS
     Route: 055
     Dates: start: 20060228, end: 20060315

REACTIONS (1)
  - DIVERTICULITIS [None]
